FAERS Safety Report 7225318-9 (Version None)
Quarter: 2011Q1

REPORT INFORMATION
  Report Type: 
  Country: None (occurrence: None)
  Receive Date: 20110113
  Receipt Date: 20110105
  Transmission Date: 20110831
  Serious: Yes (Other)
  Sender: FDA-Public Use
  Company Number: US-PFIZER INC-2011004715

PATIENT

DRUGS (1)
  1. PREPARATION H [Suspect]

REACTIONS (1)
  - RECTAL HAEMORRHAGE [None]
